FAERS Safety Report 11898913 (Version 2)
Quarter: 2016Q1

REPORT INFORMATION
  Report Type: Spontaneous
  Country: IT (occurrence: IT)
  Receive Date: 20160108
  Receipt Date: 20160126
  Transmission Date: 20160526
  Serious: Yes (Hospitalization)
  Sender: FDA-Public Use
  Company Number: IT-PFIZER INC-2016004115

PATIENT
  Age: 62 Year
  Sex: Female

DRUGS (3)
  1. LEVOFLOXACIN HEMIHYDRATE [Suspect]
     Active Substance: LEVOFLOXACIN
     Dosage: 500 MG, UNK
     Route: 048
     Dates: start: 20150310, end: 20150310
  2. TACHIDOL [Suspect]
     Active Substance: ACETAMINOPHEN\CODEINE PHOSPHATE
     Dosage: 1 DF, UNK (30/500 MG/MG)
     Route: 048
     Dates: start: 20150310, end: 20150310
  3. PANTOPAN [Suspect]
     Active Substance: PANTOPRAZOLE SODIUM
     Dosage: 1 DF, WEEKLY
     Route: 048
     Dates: start: 20150310, end: 20150310

REACTIONS (2)
  - Asthma [Recovered/Resolved]
  - Urticaria [Recovered/Resolved]

NARRATIVE: CASE EVENT DATE: 20150310
